FAERS Safety Report 11823541 (Version 4)
Quarter: 2016Q1

REPORT INFORMATION
  Report Type: Spontaneous
  Country: HU (occurrence: HU)
  Receive Date: 20151210
  Receipt Date: 20160115
  Transmission Date: 20160525
  Serious: Yes (Other)
  Sender: FDA-Public Use
  Company Number: HU-AMGEN-HUNSP2015129804

PATIENT
  Age: 39 Year
  Sex: Female
  Weight: 51 kg

DRUGS (3)
  1. AFLAMIN                            /00003801/ [Concomitant]
     Indication: ARTHRALGIA
     Dosage: 100 MG, 2X/DAY
  2. VIREAD [Concomitant]
     Active Substance: TENOFOVIR DISOPROXIL FUMARATE
     Indication: HEPATITIS B
     Dosage: 245 MG, ONE AT NOON
     Dates: start: 201503, end: 201509
  3. ENBREL [Suspect]
     Active Substance: ETANERCEPT
     Indication: RHEUMATOID ARTHRITIS
     Dosage: 50 MG, ONCE WEEKLY
     Route: 058
     Dates: start: 20150713, end: 201508

REACTIONS (3)
  - Leukopenia [Not Recovered/Not Resolved]
  - Red blood cell count abnormal [Not Recovered/Not Resolved]
  - White blood cell disorder [Not Recovered/Not Resolved]

NARRATIVE: CASE EVENT DATE: 2015
